FAERS Safety Report 7958842-1 (Version None)
Quarter: 2011Q4

REPORT INFORMATION
  Report Type: 
  Country: None (occurrence: None)
  Receive Date: 20111206
  Receipt Date: 20111129
  Transmission Date: 20120403
  Serious: Yes (Other)
  Sender: FDA-Public Use
  Company Number: US-AMGEN-USASP2011063048

PATIENT
  Age: 52 Year
  Sex: Female

DRUGS (2)
  1. ENBREL [Suspect]
     Indication: PSORIATIC ARTHROPATHY
     Dosage: 50 MG, QWK
     Dates: start: 20041015
  2. ZANTAC [Concomitant]
     Dosage: UNK

REACTIONS (4)
  - DEAFNESS [None]
  - CERVICAL CORD COMPRESSION [None]
  - HEPATITIS C VIRUS TEST POSITIVE [None]
  - HYPOAESTHESIA [None]
